FAERS Safety Report 24868150 (Version 1)
Quarter: 2025Q1

REPORT INFORMATION
  Report Type: Spontaneous
  Country: JP (occurrence: JP)
  Receive Date: 20250121
  Receipt Date: 20250121
  Transmission Date: 20250409
  Serious: Yes (Other)
  Sender: ALEXION PHARMACEUTICALS
  Company Number: JP-ASTRAZENECA-250004747_013120_P_1

PATIENT
  Age: 67 Year
  Weight: 67 kg

DRUGS (12)
  1. DURVALUMAB [Suspect]
     Active Substance: DURVALUMAB
     Indication: Non-small cell lung cancer
  2. PACLITAXEL [Suspect]
     Active Substance: PACLITAXEL
     Indication: Non-small cell lung cancer
  3. CARBOPLATIN [Suspect]
     Active Substance: CARBOPLATIN
     Indication: Non-small cell lung cancer
     Dosage: 220 MILLIGRAM, QW
  4. CARBOPLATIN [Suspect]
     Active Substance: CARBOPLATIN
     Dosage: 210 MILLIGRAM, QW
  5. PITAVASTATIN CALCIUM [Concomitant]
     Active Substance: PITAVASTATIN CALCIUM
     Dosage: AFTER BREAKFAST
  6. BEZAFIBRATE [Concomitant]
     Active Substance: BEZAFIBRATE
     Dosage: AFTER BREAKFAST AND DINNER
  7. CALCIUM POLYSTYRENE SULFONATE [Concomitant]
     Active Substance: CALCIUM POLYSTYRENE SULFONATE
     Dosage: AFTER BREAKFAST AND DINNER
  8. URSODIOL [Concomitant]
     Active Substance: URSODIOL
     Dosage: AFTER BREAKFAST AND DINNER
  9. TIMOLOL [Concomitant]
     Active Substance: TIMOLOL
  10. TRUSOPT [Concomitant]
     Active Substance: DORZOLAMIDE HYDROCHLORIDE
  11. LATANOPROST [Concomitant]
     Active Substance: LATANOPROST
  12. HEPARINOID [Concomitant]

REACTIONS (1)
  - Immune-mediated hepatic disorder [Recovering/Resolving]
